APPROVED DRUG PRODUCT: MINOCYCLINE HYDROCHLORIDE
Active Ingredient: MINOCYCLINE HYDROCHLORIDE
Strength: EQ 135MG BASE
Dosage Form/Route: TABLET, EXTENDED RELEASE;ORAL
Application: A204453 | Product #005 | TE Code: AB
Applicant: ALKEM LABORATORIES LTD
Approved: Sep 28, 2016 | RLD: No | RS: Yes | Type: RX